FAERS Safety Report 24417308 (Version 1)
Quarter: 2024Q4

REPORT INFORMATION
  Report Type: Spontaneous
  Country: DE (occurrence: DE)
  Receive Date: 20241009
  Receipt Date: 20241009
  Transmission Date: 20250115
  Serious: Yes (Other)
  Sender: FRESENIUS KABI
  Company Number: DE-002147023-NVSC2020DE172839

PATIENT
  Sex: Female
  Weight: 60.4 kg

DRUGS (4)
  1. FULVESTRANT [Suspect]
     Active Substance: FULVESTRANT
     Indication: Hormone receptor positive HER2 negative breast cancer
     Dosage: 500 MG, Q4W?FORM OF ADMINISTRATION-UNKNOWN
     Route: 030
     Dates: end: 20240702
  2. FULVESTRANT [Suspect]
     Active Substance: FULVESTRANT
     Indication: Breast cancer metastatic
     Dosage: 500 MG, Q4W?FORM OF ADMINISTRATION-UNKNOWN
     Route: 030
     Dates: start: 20240902
  3. FULVESTRANT [Suspect]
     Active Substance: FULVESTRANT
     Dosage: 500 MG, Q4W?FORM OF ADMINISTRATION-UNKNOWN
     Route: 030
     Dates: start: 20200121, end: 20231219
  4. FULVESTRANT [Suspect]
     Active Substance: FULVESTRANT
     Dosage: 250 MG, Q4W  (DAILY DOSE) (EVERY WEEK)?FORM OF ADMINISTRATION-UNKNOWN
     Route: 030
     Dates: start: 20200121

REACTIONS (3)
  - Blood pressure increased [Not Recovered/Not Resolved]
  - Upper respiratory tract infection [Recovered/Resolved]
  - Conjunctivitis [Recovered/Resolved]

NARRATIVE: CASE EVENT DATE: 20200609
